FAERS Safety Report 9943232 (Version 2)
Quarter: 2014Q1

REPORT INFORMATION
  Report Type: Spontaneous
  Country: US (occurrence: US)
  Receive Date: 20140303
  Receipt Date: 20140327
  Transmission Date: 20141002
  Serious: Yes (Other)
  Sender: FDA-Public Use
  Company Number: CHPA2014US003252

PATIENT
  Age: 58 Year
  Sex: Female

DRUGS (6)
  1. VOLTAREN GEL [Suspect]
     Indication: CARPAL TUNNEL SYNDROME
     Dosage: 4 G, PRN
     Route: 061
  2. VOLTAREN GEL [Suspect]
     Indication: OFF LABEL USE
  3. VOLTAREN GEL [Suspect]
     Indication: OFF LABEL USE
  4. OXYCODONE [Concomitant]
     Dosage: 80 MG, UNK
  5. MORPHINE SULFATE [Concomitant]
  6. LIDOCAINE [Concomitant]

REACTIONS (4)
  - Intervertebral disc protrusion [Not Recovered/Not Resolved]
  - Arthralgia [Not Recovered/Not Resolved]
  - Musculoskeletal discomfort [Not Recovered/Not Resolved]
  - Drug ineffective for unapproved indication [Unknown]
